FAERS Safety Report 8295676-5 (Version None)
Quarter: 2012Q2

REPORT INFORMATION
  Report Type: 
  Country: None (occurrence: None)
  Receive Date: 20120418
  Receipt Date: 20120410
  Transmission Date: 20120825
  Serious: Yes (Other)
  Sender: FDA-Public Use
  Company Number: ES-BRISTOL-MYERS SQUIBB COMPANY-16510323

PATIENT
  Age: 48 Year
  Sex: Male
  Weight: 90 kg

DRUGS (20)
  1. CUBICIN [Suspect]
     Route: 042
     Dates: start: 20110910, end: 20110914
  2. HEPARIN [Suspect]
     Route: 058
     Dates: start: 20110907, end: 20110930
  3. MEROPENEM [Suspect]
     Route: 042
     Dates: start: 20110905, end: 20110914
  4. ALLOPURINOL [Suspect]
     Route: 048
     Dates: start: 20110825, end: 20110908
  5. DUPHALAC [Suspect]
     Dosage: SOLUTION
     Route: 048
     Dates: start: 20110831, end: 20110914
  6. ORBENIN CAP [Suspect]
     Route: 048
     Dates: start: 20110831, end: 20110916
  7. TARGOCID [Suspect]
     Route: 042
     Dates: start: 20110906, end: 20110919
  8. ACETAMINOPHEN [Suspect]
     Route: 042
     Dates: start: 20110825, end: 20110908
  9. NOXAFIL [Suspect]
     Route: 048
     Dates: start: 20110902, end: 20110917
  10. DEXCHLORPHENIRAMINE MALEATE [Suspect]
     Route: 048
     Dates: start: 20110916, end: 20110922
  11. PIPERACILLIN AND TAZOBACTAM [Suspect]
     Route: 042
     Dates: start: 20110914, end: 20110919
  12. ENOXAPARIN SODIUM [Suspect]
     Route: 058
     Dates: start: 20110825, end: 20110826
  13. FUROSEMIDE [Suspect]
     Route: 042
     Dates: start: 20110908, end: 20110926
  14. UROKINASE [Suspect]
     Dosage: 1DF:100 KIU
     Dates: start: 20110915, end: 20110915
  15. MAXIPIME [Suspect]
     Route: 042
     Dates: start: 20110825, end: 20110903
  16. AMBISOME [Suspect]
     Route: 042
     Dates: start: 20110916, end: 20110926
  17. LEVOFLOXACIN [Suspect]
     Route: 048
     Dates: start: 20110918, end: 20110928
  18. VESANOID [Suspect]
     Indication: ACUTE PROMYELOCYTIC LEUKAEMIA
     Dates: start: 20110826, end: 20111007
  19. OMEPRAZOLE [Suspect]
     Route: 048
     Dates: start: 20110825, end: 20111007
  20. ACYCLOVIR [Suspect]
     Route: 042
     Dates: start: 20110911, end: 20110913

REACTIONS (1)
  - MYOSITIS [None]
